FAERS Safety Report 7894320-6 (Version None)
Quarter: 2011Q4

REPORT INFORMATION
  Report Type: 
  Country: None (occurrence: None)
  Receive Date: 20111104
  Receipt Date: 20111101
  Transmission Date: 20120403
  Serious: Yes (Hospitalization)
  Sender: FDA-Public Use
  Company Number: NL-MERCK-1111NLD00001

PATIENT
  Age: 68 Year
  Sex: Male
  Weight: 72 kg

DRUGS (1)
  1. ZETIA [Suspect]
     Indication: HYPERCHOLESTEROLAEMIA
     Route: 048
     Dates: start: 20110710, end: 20110803

REACTIONS (1)
  - CONSTIPATION [None]
